FAERS Safety Report 9397191 (Version 1)
Quarter: 2013Q3

REPORT INFORMATION
  Report Type: Spontaneous
  Country: US (occurrence: None)
  Receive Date: 20130710
  Receipt Date: 20130710
  Transmission Date: 20140515
  Serious: Yes (Disabling)
  Sender: FDA-Public Use
  Company Number: None

PATIENT
  Age: 19 None
  Sex: Male

DRUGS (3)
  1. LEVETIRACETAM [Suspect]
     Indication: CONVULSION
     Dosage: 500 MG 60 TWICE DAILY BY MOUTH
     Route: 048
     Dates: start: 20130409, end: 20130603
  2. LAMICTAL [Concomitant]
  3. HEARING AIDS [Concomitant]

REACTIONS (2)
  - Tinnitus [None]
  - Deafness [None]
